FAERS Safety Report 18296222 (Version 1)
Quarter: 2020Q3

REPORT INFORMATION
  Report Type: Spontaneous
  Country: IL (occurrence: IL)
  Receive Date: 20200922
  Receipt Date: 20200922
  Transmission Date: 20201103
  Serious: Yes (Other)
  Sender: FDA-Public Use
  Company Number: IL-PERRIGO-20IL013114

PATIENT
  Age: 50 Year
  Sex: Male

DRUGS (1)
  1. HAIRGAIN [MINOXIDIL] [Suspect]
     Active Substance: MINOXIDIL
     Indication: ALOPECIA
     Dosage: UNKNOWN, SINGLE
     Route: 061
     Dates: start: 20200907, end: 20200907

REACTIONS (7)
  - Hypersensitivity [Not Recovered/Not Resolved]
  - Acne [Not Recovered/Not Resolved]
  - Swelling [Not Recovered/Not Resolved]
  - Burning sensation [Not Recovered/Not Resolved]
  - Paraesthesia [Not Recovered/Not Resolved]
  - Erythema [Not Recovered/Not Resolved]
  - Skin irritation [Not Recovered/Not Resolved]

NARRATIVE: CASE EVENT DATE: 20200909
